FAERS Safety Report 4723199-6 (Version None)
Quarter: 2005Q3

REPORT INFORMATION
  Report Type: 
  Country: None (occurrence: None)
  Receive Date: 20050720
  Receipt Date: 20050715
  Transmission Date: 20060218
  Serious: Yes (Death)
  Sender: FDA-Public Use
  Company Number: 2005US-00587

PATIENT
  Age: 77 Year
  Sex: Female

DRUGS (1)
  1. CIPROFLOXACIN [Suspect]

REACTIONS (19)
  - CEREBRAL HAEMORRHAGE [None]
  - FACTOR XIII DEFICIENCY [None]
  - FACTOR XIII INHIBITION [None]
  - GASTRIC ULCER HAEMORRHAGE [None]
  - HAEMATOMA [None]
  - HAEMOGLOBIN DECREASED [None]
  - HAEMORRHAGE [None]
  - HAEMORRHAGE SUBCUTANEOUS [None]
  - HEADACHE [None]
  - MUSCLE HAEMORRHAGE [None]
  - PAIN [None]
  - POST PROCEDURAL HAEMORRHAGE [None]
  - SHOCK [None]
  - SOFT TISSUE HAEMORRHAGE [None]
  - THERAPY NON-RESPONDER [None]
  - THROMBOCYTOPENIA [None]
  - THROMBOSIS [None]
  - URINARY TRACT INFECTION [None]
  - VENOUS THROMBOSIS [None]
